FAERS Safety Report 9729180 (Version 1)
Quarter: 2013Q4

REPORT INFORMATION
  Report Type: Report from Study
  Country: US (occurrence: US)
  Receive Date: 20131204
  Receipt Date: 20131204
  Transmission Date: 20140711
  Serious: Yes (Other)
  Sender: FDA-Public Use
  Company Number: US-PURDUE-USA-2013-0109131

PATIENT
  Age: 42 Year
  Sex: Female

DRUGS (3)
  1. OXY CR TAB [Suspect]
     Indication: PRODUCT USED FOR UNKNOWN INDICATION
     Dosage: UNK
     Route: 048
     Dates: start: 2010
  2. OXY CR TAB [Suspect]
     Dosage: 80 MG, TID
     Route: 048
     Dates: start: 20131025
  3. OXY CR TAB [Suspect]
     Dosage: 20 MG, BID
     Route: 048

REACTIONS (2)
  - Brain operation [Unknown]
  - Pain [Unknown]
